FAERS Safety Report 7196503-X (Version None)
Quarter: 2010Q4

REPORT INFORMATION
  Report Type: 
  Country: None (occurrence: None)
  Receive Date: 20101223
  Receipt Date: 20101026
  Transmission Date: 20110411
  Serious: No
  Sender: FDA-Public Use
  Company Number: US-AMGEN-USASP2010001857

PATIENT

DRUGS (1)
  1. ENBREL [Suspect]
     Indication: JUVENILE ARTHRITIS
     Dosage: 50 MG, QWK
     Dates: start: 20100805

REACTIONS (5)
  - INJECTION SITE DISCOLOURATION [None]
  - INJECTION SITE EXFOLIATION [None]
  - INJECTION SITE INJURY [None]
  - INJECTION SITE PAIN [None]
  - INJECTION SITE SWELLING [None]
